FAERS Safety Report 5777898-8 (Version None)
Quarter: 2008Q2

REPORT INFORMATION
  Report Type: 
  Country: None (occurrence: None)
  Receive Date: 20080618
  Receipt Date: 20080612
  Transmission Date: 20081010
  Serious: Yes (Hospitalization)
  Sender: FDA-Public Use
  Company Number: US-MERCK-0805USA00560

PATIENT
  Age: 63 Year
  Sex: Female

DRUGS (9)
  1. JANUVIA [Suspect]
     Indication: TYPE 1 DIABETES MELLITUS
     Route: 048
     Dates: start: 20080423, end: 20080424
  2. ATENOLOL [Suspect]
     Indication: ARRHYTHMIA
     Route: 065
  3. ATENOLOL [Suspect]
     Route: 065
  4. ATENOLOL [Suspect]
     Route: 065
  5. ATENOLOL [Suspect]
     Indication: SINUS TACHYCARDIA
     Route: 065
  6. ATENOLOL [Suspect]
     Route: 065
  7. ATENOLOL [Suspect]
     Route: 065
  8. LOTREL [Concomitant]
     Indication: HYPERTENSION
     Route: 065
  9. HUMALOG [Concomitant]
     Route: 065

REACTIONS (5)
  - BLOOD GLUCOSE DECREASED [None]
  - CONTUSION [None]
  - LOSS OF CONSCIOUSNESS [None]
  - OFF LABEL USE [None]
  - PAIN [None]
